FAERS Safety Report 9832224 (Version 2)
Quarter: 2014Q1

REPORT INFORMATION
  Report Type: Report from Study
  Country: FR (occurrence: FR)
  Receive Date: 20140121
  Receipt Date: 20140311
  Transmission Date: 20141002
  Serious: Yes (Hospitalization)
  Sender: FDA-Public Use
  Company Number: FR-MERCK-1401FRA008292

PATIENT
  Sex: Female
  Weight: 53 kg

DRUGS (4)
  1. DEXAMETHASONE [Suspect]
     Indication: LYMPHOMA
     Dosage: UNK
     Dates: start: 20130711
  2. TEMSIROLIMUS [Suspect]
     Dosage: 50 MG, CYCLICAL
     Dates: start: 20130711, end: 20130821
  3. ARACYTINE [Suspect]
     Indication: LYMPHOMA
     Dosage: UNK
     Dates: start: 20130711
  4. MABTHERA [Suspect]
     Indication: LYMPHOMA
     Dosage: UNK
     Dates: start: 20130710

REACTIONS (2)
  - Thrombocytopenia [Recovered/Resolved with Sequelae]
  - Anaemia [Recovered/Resolved with Sequelae]
